FAERS Safety Report 8825780 (Version 2)
Quarter: 2012Q4

REPORT INFORMATION
  Report Type: 
  Country: US (occurrence: US)
  Receive Date: 20121004
  Receipt Date: 20121008
  Transmission Date: 20130627
  Serious: Yes (Hospitalization, Other)
  Sender: FDA-Public Use
  Company Number: US-ABBOTT-12P-163-0988944-00

PATIENT
  Age: 84 None
  Sex: Female
  Weight: 51.76 kg

DRUGS (7)
  1. HUMIRA [Suspect]
     Indication: COLITIS ULCERATIVE
     Dates: start: 2010
  2. PRAVASTATIN [Concomitant]
     Indication: CARDIAC DISORDER
  3. PRAVASTATIN [Concomitant]
     Indication: HYPERTENSION
  4. NORVASC [Concomitant]
     Indication: HYPERTENSION
  5. HYDROCHLOROTHIAZIDE [Concomitant]
     Indication: FLUID RETENTION
  6. BABY ASPIRIN [Concomitant]
     Indication: PROPHYLAXIS
  7. EYE VITAMINS [Concomitant]
     Indication: EYE DISORDER
     Route: 048

REACTIONS (6)
  - Cardiac disorder [Recovered/Resolved]
  - Chest pain [Recovered/Resolved]
  - Wrong technique in drug usage process [Not Recovered/Not Resolved]
  - Injection site haemorrhage [Recovered/Resolved]
  - Off label use [Not Recovered/Not Resolved]
  - Colitis ulcerative [Not Recovered/Not Resolved]
